FAERS Safety Report 7941925 (Version 3)
Quarter: 2015Q4

REPORT INFORMATION
  Report Type: Spontaneous
  Country: US (occurrence: US)
  Receive Date: 20110512
  Receipt Date: 20151214
  Transmission Date: 20160305
  Serious: Yes (Death, Other)
  Sender: FDA-Public Use
  Company Number: US-PFIZER INC-2011100152

PATIENT
  Age: 33 Year
  Sex: Male

DRUGS (1)
  1. CHANTIX [Suspect]
     Active Substance: VARENICLINE TARTRATE
     Indication: SMOKING CESSATION THERAPY
     Dosage: UNK
     Dates: start: 20071016

REACTIONS (5)
  - Nightmare [Unknown]
  - Completed suicide [Fatal]
  - Aggression [Unknown]
  - Anger [Unknown]
  - Homicide [Unknown]

NARRATIVE: CASE EVENT DATE: 2008
